FAERS Safety Report 20085982 (Version 1)
Quarter: 2021Q4

REPORT INFORMATION
  Report Type: Spontaneous
  Country: US (occurrence: None)
  Receive Date: 20211117
  Receipt Date: 20211117
  Transmission Date: 20220303
  Serious: No
  Sender: FDA-Public Use
  Company Number: None

PATIENT

DRUGS (2)
  1. JASMIEL [Suspect]
     Active Substance: DROSPIRENONE\ETHINYL ESTRADIOL
  2. DROSPIRENONE\ETHINYL ESTRADIOL [Suspect]
     Active Substance: DROSPIRENONE\ETHINYL ESTRADIOL

REACTIONS (5)
  - Transcription medication error [None]
  - Product name confusion [None]
  - Incorrect dose administered [None]
  - Product dispensing error [None]
  - Product dispensing error [None]
